FAERS Safety Report 7925198-X (Version None)
Quarter: 2011Q4

REPORT INFORMATION
  Report Type: 
  Country: None (occurrence: None)
  Receive Date: 20111118
  Receipt Date: 20110404
  Transmission Date: 20120403
  Serious: No
  Sender: FDA-Public Use
  Company Number: US-AMGEN-USASP2011017886

PATIENT
  Age: 45 Year
  Sex: Female

DRUGS (1)
  1. ENBREL [Suspect]
     Indication: RHEUMATOID ARTHRITIS
     Dosage: 50 MG, QWK
     Dates: start: 20100801, end: 20110331

REACTIONS (9)
  - BALANCE DISORDER [None]
  - RHINORRHOEA [None]
  - EAR PAIN [None]
  - NECK PAIN [None]
  - HEADACHE [None]
  - HEAD DISCOMFORT [None]
  - ARTHRALGIA [None]
  - THROAT IRRITATION [None]
  - COUGH [None]
